FAERS Safety Report 16710153 (Version 1)
Quarter: 2019Q3

REPORT INFORMATION
  Report Type: Spontaneous
  Country: US (occurrence: US)
  Receive Date: 20190816
  Receipt Date: 20190816
  Transmission Date: 20191004
  Serious: Yes (Other)
  Sender: FDA-Public Use
  Company Number: US-JNJFOC-20190809586

PATIENT
  Age: 69 Year
  Sex: Male

DRUGS (1)
  1. ERLEADA [Suspect]
     Active Substance: APALUTAMIDE
     Indication: PROSTATE CANCER
     Route: 048
     Dates: start: 20190731

REACTIONS (6)
  - Balanoposthitis [Not Recovered/Not Resolved]
  - Urine odour abnormal [Not Recovered/Not Resolved]
  - Skin discolouration [Not Recovered/Not Resolved]
  - Dysuria [Not Recovered/Not Resolved]
  - Rash [Not Recovered/Not Resolved]
  - Surgery [Recovered/Resolved]

NARRATIVE: CASE EVENT DATE: 201908
